FAERS Safety Report 20633149 (Version 1)
Quarter: 2022Q1

REPORT INFORMATION
  Report Type: Spontaneous
  Country: BR (occurrence: BR)
  Receive Date: 20220324
  Receipt Date: 20220324
  Transmission Date: 20220423
  Serious: Yes (Hospitalization, Other)
  Sender: FDA-Public Use
  Company Number: BR-SLATE RUN PHARMACEUTICALS-22BR000971

PATIENT

DRUGS (5)
  1. VORICONAZOLE [Suspect]
     Active Substance: VORICONAZOLE
     Indication: Aspergillus infection
     Dosage: 200 MILLIGRAM, BID
     Route: 048
  2. VORICONAZOLE [Suspect]
     Active Substance: VORICONAZOLE
     Dosage: 200 MILLIGRAM, BID
     Route: 048
  3. VORICONAZOLE [Suspect]
     Active Substance: VORICONAZOLE
     Dosage: 200 MILLIGRAM, BID
     Route: 042
     Dates: start: 2018, end: 2018
  4. ITRACONAZOLE [Suspect]
     Active Substance: ITRACONAZOLE
     Indication: Aspergillus infection
     Dosage: 200 MILLIGRAM, BID
     Route: 048
  5. MICAFUNGIN [Concomitant]
     Active Substance: MICAFUNGIN
     Indication: Aspergillus infection
     Dosage: 100 MILLIGRAM
     Route: 042

REACTIONS (6)
  - Renal abscess [Unknown]
  - Prostatic abscess [Unknown]
  - Bronchopulmonary aspergillosis [Unknown]
  - Drug ineffective [Unknown]
  - Pleural effusion [Unknown]
  - Drug resistance [Not Recovered/Not Resolved]
